FAERS Safety Report 10753428 (Version 1)
Quarter: 2015Q1

REPORT INFORMATION
  Report Type: Spontaneous
  Country: NO (occurrence: NO)
  Receive Date: 20150131
  Receipt Date: 20150131
  Transmission Date: 20150721
  Serious: Yes (Other)
  Sender: FDA-Public Use
  Company Number: PHHY2015NO010571

PATIENT
  Age: 25 Year
  Sex: Female

DRUGS (4)
  1. METOCLOPRAMIDE. [Suspect]
     Active Substance: METOCLOPRAMIDE
     Dosage: 10 MG, QD
     Route: 048
  2. METOCLOPRAMIDE. [Suspect]
     Active Substance: METOCLOPRAMIDE
     Indication: GASTROENTERITIS
     Dosage: 10 MG, UNK
     Route: 030
  3. METOCLOPRAMIDE. [Suspect]
     Active Substance: METOCLOPRAMIDE
     Indication: GASTROENTERITIS
     Dosage: 5 MG, QD
     Route: 048
  4. DIPHENHYDRAMINE [Concomitant]
     Active Substance: DIPHENHYDRAMINE
     Indication: GASTROENTERITIS
     Route: 065

REACTIONS (18)
  - Muscle twitching [Not Recovered/Not Resolved]
  - Nightmare [Recovered/Resolved]
  - Anxiety [Recovered/Resolved]
  - Asthenia [Recovered/Resolved]
  - Dyskinesia [Recovered/Resolved]
  - Somatoform disorder [Recovered/Resolved]
  - Mental impairment [Not Recovered/Not Resolved]
  - Dizziness [Recovered/Resolved]
  - Confusional state [Recovered/Resolved]
  - Suicidal ideation [Recovered/Resolved]
  - Tremor [Recovered/Resolved]
  - Fatigue [Recovered/Resolved]
  - Obsessive-compulsive disorder [Recovered/Resolved]
  - Panic attack [Recovered/Resolved]
  - Tic [Recovered/Resolved]
  - Palpitations [Recovered/Resolved]
  - Depression [Recovered/Resolved]
  - Vertigo [Recovered/Resolved]
